FAERS Safety Report 4492389-2 (Version None)
Quarter: 2004Q4

REPORT INFORMATION
  Report Type: 
  Country: None (occurrence: None)
  Receive Date: 20041102
  Receipt Date: 20041102
  Transmission Date: 20050328
  Serious: No
  Sender: FDA-Public Use
  Company Number: None

PATIENT
  Sex: Female

DRUGS (1)
  1. VICOPROFEN [Suspect]
     Indication: BACK PAIN
     Dosage: ONE PO Q 6 H PRN PN
     Route: 048

REACTIONS (1)
  - NO ADVERSE EFFECT [None]
